FAERS Safety Report 19140115 (Version 1)
Quarter: 2021Q2

REPORT INFORMATION
  Report Type: Spontaneous
  Country: GB (occurrence: GB)
  Receive Date: 20210415
  Receipt Date: 20210415
  Transmission Date: 20210717
  Serious: Yes (Hospitalization, Disabling)
  Sender: FDA-Public Use
  Company Number: GB-TEVA-2021-GB-1899871

PATIENT
  Age: 67 Year
  Sex: Male
  Weight: 78.2 kg

DRUGS (6)
  1. ACCORD HEALTHCARE PARACETAMOL [Concomitant]
     Indication: ILL-DEFINED DISORDER
  2. ACCORD?UK GABAPENTIN [Concomitant]
     Indication: ILL-DEFINED DISORDER
  3. FERROUS FUMARATE [Concomitant]
     Active Substance: FERROUS FUMARATE
     Indication: ILL-DEFINED DISORDER
  4. WARFARIN [Suspect]
     Active Substance: WARFARIN
     Indication: DEEP VEIN THROMBOSIS
     Dosage: MON?FRI =5MG SAT?SUN =4MG
     Route: 048
     Dates: start: 2010, end: 20210303
  5. BENZBROMARONE [Concomitant]
     Active Substance: BENZBROMARONE
     Indication: ILL-DEFINED DISORDER
  6. FOLIC ACID. [Concomitant]
     Active Substance: FOLIC ACID
     Indication: ILL-DEFINED DISORDER

REACTIONS (1)
  - Skin necrosis [Not Recovered/Not Resolved]

NARRATIVE: CASE EVENT DATE: 20210303
